FAERS Safety Report 6807570-4 (Version None)
Quarter: 2010Q2

REPORT INFORMATION
  Report Type: 
  Country: None (occurrence: None)
  Receive Date: 20100629
  Receipt Date: 20090130
  Transmission Date: 20101027
  Serious: No
  Sender: FDA-Public Use
  Company Number: US-PFIZER INC-2008085741

PATIENT
  Sex: Male
  Weight: 127.01 kg

DRUGS (7)
  1. TIKOSYN [Suspect]
     Dates: start: 20060101
  2. BENICAR HCT [Interacting]
     Indication: HYPERTENSION
     Dosage: UNK UG, UNK
     Route: 048
     Dates: start: 20070101, end: 20070101
  3. FUROSEMIDE [Concomitant]
  4. KLOR-CON [Concomitant]
     Dosage: 20 MEQ, UNK
  5. TAMSULOSIN [Concomitant]
  6. WARFARIN [Concomitant]
  7. ADVICOR [Concomitant]

REACTIONS (5)
  - ATRIAL FIBRILLATION [None]
  - DRUG INTERACTION [None]
  - HEART RATE INCREASED [None]
  - HEART RATE IRREGULAR [None]
  - URINARY TRACT INFECTION [None]
